FAERS Safety Report 18817750 (Version 1)
Quarter: 2021Q1

REPORT INFORMATION
  Report Type: Report from Study
  Country: US (occurrence: US)
  Receive Date: 20210201
  Receipt Date: 20210201
  Transmission Date: 20210419
  Serious: Yes (Hospitalization)
  Sender: FDA-Public Use
  Company Number: US-EISAI MEDICAL RESEARCH-EC-2021-087120

PATIENT
  Age: 62 Year
  Sex: Female
  Weight: 107 kg

DRUGS (9)
  1. HYDRALAZINE [Concomitant]
     Active Substance: HYDRALAZINE HYDROCHLORIDE
  2. LENVIMA [Suspect]
     Active Substance: LENVATINIB
     Indication: ENDOMETRIAL CANCER METASTATIC
     Route: 048
     Dates: start: 20201021, end: 20201202
  3. POTASSIUM [Concomitant]
     Active Substance: POTASSIUM
  4. AMLODIPINE [Concomitant]
     Active Substance: AMLODIPINE BESYLATE
  5. KEYTRUDA [Concomitant]
     Active Substance: PEMBROLIZUMAB
  6. LENVIMA [Suspect]
     Active Substance: LENVATINIB
     Indication: ENDOMETRIAL CANCER
     Dosage: 10 MG DAILY FOR 1 WEEK IF TOLERATED.
     Route: 048
     Dates: start: 20201214, end: 202101
  7. OXYCODONE [Concomitant]
     Active Substance: OXYCODONE
  8. CARVEDILOL. [Concomitant]
     Active Substance: CARVEDILOL
  9. HYDROCHLOROTHIAZIDE. [Concomitant]
     Active Substance: HYDROCHLOROTHIAZIDE

REACTIONS (1)
  - Hypertension [Unknown]

NARRATIVE: CASE EVENT DATE: 20201222
